FAERS Safety Report 17849755 (Version 1)
Quarter: 2020Q2

REPORT INFORMATION
  Report Type: Spontaneous
  Country: US (occurrence: US)
  Receive Date: 20200602
  Receipt Date: 20200602
  Transmission Date: 20200714
  Serious: No
  Sender: FDA-Public Use
  Company Number: US-PFIZER INC-2020-07682

PATIENT
  Age: 49 Year
  Sex: Female

DRUGS (2)
  1. BRAFTOVI [Suspect]
     Active Substance: ENCORAFENIB
     Indication: MALIGNANT MELANOMA
     Dosage: 450.00 MG, DAILY (QD, 6 CAPSULES BY MOUTH ONCE DAILY)
     Route: 048
     Dates: start: 20200227, end: 20200401
  2. MEKTOVI [Suspect]
     Active Substance: BINIMETINIB
     Indication: MALIGNANT MELANOMA
     Dosage: 45.00 MG, TWICE A DAY (BID)
     Route: 048
     Dates: start: 20200227, end: 20200401

REACTIONS (2)
  - Product dose omission [Unknown]
  - Pyrexia [Unknown]

NARRATIVE: CASE EVENT DATE: 20200401
